FAERS Safety Report 9424596 (Version 5)
Quarter: 2013Q4

REPORT INFORMATION
  Report Type: Spontaneous
  Country: DE (occurrence: DE)
  Receive Date: 20130729
  Receipt Date: 20131004
  Transmission Date: 20140711
  Serious: Yes (Hospitalization)
  Sender: FDA-Public Use
  Company Number: DE-EISAI INC-E2007-01257-SPO-DE

PATIENT
  Age: 65 Year
  Sex: Male
  Weight: 75 kg

DRUGS (8)
  1. FYCOMPA (PERAMPANEL) [Suspect]
     Indication: CONVULSION
     Dosage: 2 MG/DAY
     Route: 048
     Dates: start: 20130513, end: 20130516
  2. FYCOMPA (PERAMPANEL) [Suspect]
     Dosage: 4 MG/DAY
     Route: 048
     Dates: start: 20130517, end: 20130520
  3. FYCOMPA (PERAMPANEL) [Suspect]
     Dosage: 6 MG/DAY
     Route: 048
     Dates: start: 20130521, end: 20130524
  4. FYCOMPA (PERAMPANEL) [Suspect]
     Dosage: 8 MG/DAY
     Route: 048
     Dates: start: 20130525, end: 20130529
  5. ZEBINIX [Concomitant]
     Indication: EPILEPSY
     Dosage: 800 MG/DAY
     Route: 048
     Dates: start: 20130206, end: 201305
  6. ZEBINIX [Concomitant]
     Dosage: REDUCED (DOSE UNKNOWN)
     Route: 048
     Dates: start: 201305
  7. VALPROAT [Concomitant]
     Indication: EPILEPSY
     Dosage: 1750 MG/DAY
     Route: 048
     Dates: start: 2011, end: 201305
  8. VALPROAT [Concomitant]
     Dosage: REDUCED (DOSE UNKNOWN)
     Route: 048
     Dates: start: 201305

REACTIONS (1)
  - Pancreatitis [Recovering/Resolving]
